FAERS Safety Report 13519237 (Version 3)
Quarter: 2017Q4

REPORT INFORMATION
  Report Type: Report from Study
  Country: US (occurrence: US)
  Receive Date: 20170505
  Receipt Date: 20171101
  Transmission Date: 20180320
  Serious: Yes (Hospitalization, Other)
  Sender: FDA-Public Use
  Company Number: US-GILEAD-2017-0271196

PATIENT
  Age: 58 Year
  Sex: Female

DRUGS (6)
  1. REVATIO [Concomitant]
     Active Substance: SILDENAFIL CITRATE
  2. POTASSIUM CHLORIDE. [Concomitant]
     Active Substance: POTASSIUM CHLORIDE
  3. AMBRISENTAN [Suspect]
     Active Substance: AMBRISENTAN
     Indication: PRODUCT USED FOR UNKNOWN INDICATION
     Dosage: 10 MG, QD
     Route: 065
     Dates: start: 20141211
  4. LASIX [Concomitant]
     Active Substance: FUROSEMIDE
  5. REMODULIN [Concomitant]
     Active Substance: TREPROSTINIL
  6. COUMADIN [Concomitant]
     Active Substance: WARFARIN SODIUM

REACTIONS (3)
  - Bradycardia [Recovered/Resolved]
  - Vomiting [Recovered/Resolved]
  - Infusion site infection [Recovered/Resolved]
